FAERS Safety Report 14528634 (Version 2)
Quarter: 2018Q1

REPORT INFORMATION
  Report Type: Spontaneous
  Country: MX (occurrence: MX)
  Receive Date: 20180214
  Receipt Date: 20180304
  Transmission Date: 20180509
  Serious: Yes (Other)
  Sender: FDA-Public Use
  Company Number: MX-ACCORD-063215

PATIENT
  Age: 47 Year
  Sex: Female

DRUGS (11)
  1. SULFASALAZINE. [Concomitant]
     Active Substance: SULFASALAZINE
  2. INFLIXIMAB [Concomitant]
     Active Substance: INFLIXIMAB
  3. PARACETAMOL [Concomitant]
     Active Substance: ACETAMINOPHEN
  4. PREDNISONE. [Concomitant]
     Active Substance: PREDNISONE
  5. SULINDAC/SULINDAC SODIUM [Concomitant]
  6. INDOMETACIN [Concomitant]
     Active Substance: INDOMETHACIN
  7. TOCILIZUMAB. [Concomitant]
     Active Substance: TOCILIZUMAB
  8. OMEPRAZOLE. [Concomitant]
     Active Substance: OMEPRAZOLE
  9. METHOTREXATE. [Suspect]
     Active Substance: METHOTREXATE
     Indication: RHEUMATOID ARTHRITIS
     Dates: start: 199605, end: 200808
  10. FOLATE SODIUM/FOLIC ACID [Concomitant]
  11. ERTAPENEM/ERTAPENEM SODIUM [Concomitant]

REACTIONS (7)
  - Nutritional condition abnormal [Recovering/Resolving]
  - Oral candidiasis [Recovering/Resolving]
  - Hepatic function abnormal [Recovering/Resolving]
  - Platelet count decreased [Recovering/Resolving]
  - Vitamin B12 abnormal [Recovering/Resolving]
  - White blood cell count decreased [Recovering/Resolving]
  - Mucosal inflammation [Recovering/Resolving]

NARRATIVE: CASE EVENT DATE: 200808
